FAERS Safety Report 14304026 (Version 1)
Quarter: 2017Q4

REPORT INFORMATION
  Report Type: Spontaneous
  Country: JP (occurrence: JP)
  Receive Date: 20171219
  Receipt Date: 20171219
  Transmission Date: 20180321
  Serious: Yes (Hospitalization)
  Sender: FDA-Public Use
  Company Number: JP-OTSUKA-JP-2011-11126

PATIENT
  Age: 66 Year
  Sex: Male
  Weight: 45 kg

DRUGS (21)
  1. SENNOSIDE [Concomitant]
     Active Substance: SENNOSIDES
     Indication: CONSTIPATION
     Dosage: 24 MG, QD
     Route: 048
     Dates: start: 20110221
  2. LONASEN [Concomitant]
     Active Substance: BLONANSERIN
     Indication: SCHIZOPHRENIA
     Dosage: 12 MG, QD
     Route: 048
     Dates: start: 20110309
  3. ZYPREXA [Concomitant]
     Active Substance: OLANZAPINE
     Indication: SCHIZOPHRENIA
     Dosage: 20 MG, QD
     Route: 048
     Dates: start: 20110309
  4. BUDESONIDE. [Concomitant]
     Active Substance: BUDESONIDE
     Dosage: INHALATION VAPOUR
     Route: 055
  5. OLANZAPINE. [Concomitant]
     Active Substance: OLANZAPINE
     Dosage: TABS
     Dates: start: 20110309
  6. ABILIFY [Suspect]
     Active Substance: ARIPIPRAZOLE
     Dosage: 12 MG, BID
     Route: 048
     Dates: start: 20110420, end: 20110720
  7. TULOBUTEROL [Concomitant]
     Active Substance: TULOBUTEROL
     Indication: CHRONIC OBSTRUCTIVE PULMONARY DISEASE
     Dosage: 2 MG, QD
     Dates: start: 20110301
  8. ARTANE [Concomitant]
     Active Substance: TRIHEXYPHENIDYL HYDROCHLORIDE
     Indication: ADVERSE DRUG REACTION
     Dosage: 2 MG, TID
     Route: 048
     Dates: start: 20110221
  9. TELBANS [Suspect]
     Active Substance: THEOPHYLLINE
     Indication: CHRONIC OBSTRUCTIVE PULMONARY DISEASE
     Dosage: 200 MG, BID
     Route: 048
     Dates: start: 20110518, end: 20110720
  10. BENZALIN [Concomitant]
     Active Substance: NITRAZEPAM
     Indication: INSOMNIA
     Dosage: 10 MG, QD
     Route: 048
     Dates: start: 20110221
  11. TRIAZOLAM. [Concomitant]
     Active Substance: TRIAZOLAM
     Dosage: TABS
     Dates: start: 20110511
  12. ABILIFY [Suspect]
     Active Substance: ARIPIPRAZOLE
     Indication: SCHIZOPHRENIA
     Dosage: 6 MG, BID
     Route: 048
     Dates: start: 20110413, end: 20110419
  13. SOLANAX [Concomitant]
     Active Substance: ALPRAZOLAM
     Indication: ANXIETY
     Dosage: 0.4 MG, TID
     Route: 048
     Dates: start: 20110302
  14. TASMOLIN [Concomitant]
     Active Substance: BIPERIDEN
     Indication: ADVERSE DRUG REACTION
     Dosage: 1 MG, TID
     Route: 048
     Dates: start: 20110511
  15. HALCION [Concomitant]
     Active Substance: TRIAZOLAM
     Indication: INSOMNIA
     Dosage: 0.25 MG, QD
     Route: 048
     Dates: start: 20110511
  16. SENNA [Concomitant]
     Active Substance: SENNA LEAF\SENNOSIDES\SENNOSIDES A AND B
     Dosage: TABS
     Dates: start: 20110221
  17. ALPRAZOLAM. [Concomitant]
     Active Substance: ALPRAZOLAM
     Dosage: TABS
     Dates: start: 20110302
  18. UNIPHYL [Suspect]
     Active Substance: THEOPHYLLINE ANHYDROUS
     Indication: CHRONIC OBSTRUCTIVE PULMONARY DISEASE
     Dosage: TELBANS SYRUP
     Route: 048
     Dates: start: 20110518, end: 20110720
  19. AMLODIN [Concomitant]
     Active Substance: AMLODIPINE BESYLATE
     Indication: HYPERTENSION
     Dosage: 5 MG, QD
     Route: 048
     Dates: start: 20110511
  20. VASOLATOR [Concomitant]
     Indication: HYPERTENSION
     Dosage: 27 MG, QD
     Dates: start: 20110221
  21. DEPAKENE [Concomitant]
     Active Substance: VALPROIC ACID
     Indication: MANIA
     Dosage: 400 MG, QD
     Route: 048
     Dates: start: 20110511

REACTIONS (1)
  - Hypokalaemia [Recovered/Resolved]

NARRATIVE: CASE EVENT DATE: 20110606
